FAERS Safety Report 20042525 (Version 1)
Quarter: 2021Q4

REPORT INFORMATION
  Report Type: Other
  Country: DE (occurrence: DE)
  Receive Date: 20211108
  Receipt Date: 20211108
  Transmission Date: 20220303
  Serious: Yes (Congenital Anomaly)
  Sender: FDA-Public Use
  Company Number: DE-MACLEODS PHARMA UK LTD-MAC2021033214

PATIENT

DRUGS (2)
  1. ESCITALOPRAM [Suspect]
     Active Substance: ESCITALOPRAM OXALATE
     Indication: Perinatal depression
     Dosage: UNK, 10 [MG/D ]/ VARYING DOSAGE BETWEEN 5 AND 10MG DAILY, EXPOSURE AT FIRST TRIMESTER
     Route: 064
     Dates: start: 20200404, end: 20201231
  2. Femibion [Concomitant]
     Indication: Prophylaxis of neural tube defect
     Dosage: UNK, DURING FIRST TRIMESTER, 5.6. - 36.3. GESTATIONAL WEEK
     Route: 064

REACTIONS (2)
  - Ventricular septal defect [Not Recovered/Not Resolved]
  - Foetal exposure during pregnancy [Unknown]

NARRATIVE: CASE EVENT DATE: 20201231
